FAERS Safety Report 18558459 (Version 1)
Quarter: 2020Q4

REPORT INFORMATION
  Report Type: Spontaneous
  Country: US (occurrence: US)
  Receive Date: 20201127
  Receipt Date: 20201127
  Transmission Date: 20210114
  Serious: Yes (Hospitalization)
  Sender: FDA-Public Use
  Company Number: None

PATIENT
  Age: 75 Year
  Sex: Male
  Weight: 111.1 kg

DRUGS (1)
  1. BAMLANIVIMAB. [Suspect]
     Active Substance: BAMLANIVIMAB
     Indication: COVID-19
     Dosage: ?          OTHER FREQUENCY:ONCE;?
     Route: 041
     Dates: start: 20201120

REACTIONS (5)
  - Oxygen saturation decreased [None]
  - Inflammatory marker increased [None]
  - Dyspnoea [None]
  - Leukocytosis [None]
  - Interstitial lung disease [None]

NARRATIVE: CASE EVENT DATE: 20201121
